FAERS Safety Report 4434276-1 (Version None)
Quarter: 2004Q3

REPORT INFORMATION
  Report Type: 
  Country: None (occurrence: None)
  Receive Date: 20040825
  Receipt Date: 20040810
  Transmission Date: 20050211
  Serious: Yes (Other)
  Sender: FDA-Public Use
  Company Number: CIP95000008

PATIENT
  Age: 66 Year
  Sex: Female

DRUGS (1)
  1. MACRODANTIN [Suspect]
     Indication: URINARY TRACT DISORDER
     Dosage: 50 MG, ORAL
     Route: 048
     Dates: start: 19910629, end: 19910705

REACTIONS (4)
  - BRONCHOSPASM [None]
  - DYSPNOEA [None]
  - RASH [None]
  - SHOCK [None]
